FAERS Safety Report 6731952-2 (Version None)
Quarter: 2010Q2

REPORT INFORMATION
  Report Type: 
  Country: None (occurrence: None)
  Receive Date: 20100519
  Receipt Date: 20100507
  Transmission Date: 20101027
  Serious: Yes (Hospitalization, Other)
  Sender: FDA-Public Use
  Company Number: AT-AMGEN-US403413

PATIENT
  Sex: Male
  Weight: 70 kg

DRUGS (6)
  1. ENBREL [Suspect]
     Indication: JUVENILE ARTHRITIS
     Route: 058
     Dates: start: 20060307, end: 20090701
  2. ENBREL [Suspect]
     Route: 058
     Dates: start: 20090901, end: 20100313
  3. PROXEN [Suspect]
     Route: 048
     Dates: start: 20030701, end: 20100201
  4. IBRUPROFEN [Concomitant]
     Dosage: DOSIS AND FREQUENCY UNKNOWN
     Dates: end: 20100301
  5. METHOTREXATE [Concomitant]
     Route: 058
     Dates: start: 20030701, end: 20100301
  6. HUMIRA [Concomitant]
     Route: 058
     Dates: start: 20090701, end: 20090801

REACTIONS (6)
  - ARTHRITIS [None]
  - CONDITION AGGRAVATED [None]
  - MUSCULAR DYSTROPHY [None]
  - NEPHRITIS [None]
  - OEDEMA PERIPHERAL [None]
  - SYSTEMIC LUPUS ERYTHEMATOSUS [None]
